FAERS Safety Report 4667306-2 (Version None)
Quarter: 2005Q2

REPORT INFORMATION
  Report Type: 
  Country: None (occurrence: None)
  Receive Date: 20050520
  Receipt Date: 20040916
  Transmission Date: 20051028
  Serious: Yes (Other)
  Sender: FDA-Public Use
  Company Number: PHEH2004US09998

PATIENT
  Age: 58 Year
  Sex: Female

DRUGS (7)
  1. ZOMETA [Suspect]
     Indication: METASTASES TO BONE
     Dosage: 4 MG, QMO
     Route: 042
     Dates: start: 20020501, end: 20040915
  2. TAMOXIFEN [Concomitant]
     Dates: start: 19980101
  3. MEGACE [Concomitant]
     Dates: start: 19980101
  4. VIOXX [Concomitant]
     Dates: start: 19980101
  5. VICODIN [Concomitant]
     Dates: start: 19980101
  6. TAXOL [Concomitant]
     Dates: start: 19980101
  7. ADRIAMYCIN PFS [Concomitant]
     Dates: start: 19980101

REACTIONS (2)
  - OSTEONECROSIS [None]
  - TOOTH EXTRACTION [None]
